FAERS Safety Report 21792763 (Version 2)
Quarter: 2023Q1

REPORT INFORMATION
  Report Type: Report from Study
  Country: US (occurrence: US)
  Receive Date: 20221229
  Receipt Date: 20230110
  Transmission Date: 20230418
  Serious: No
  Sender: FDA-Public Use
  Company Number: US-SA-SAC20221228000805

PATIENT
  Age: 81 Year
  Sex: Female
  Weight: 53.968 kg

DRUGS (18)
  1. DUPIXENT [Suspect]
     Active Substance: DUPILUMAB
     Indication: Asthma
     Dosage: 400 MG, 1X
     Route: 058
     Dates: start: 20221226, end: 20221226
  2. DUPIXENT [Suspect]
     Active Substance: DUPILUMAB
     Dosage: 200 MG, QOW
     Route: 058
  3. ALGELDRATE\SODIUM ALGINATE [Concomitant]
     Active Substance: ALGELDRATE\SODIUM ALGINATE
     Indication: Dyspepsia
  4. PROBIOTICS NOS [Concomitant]
     Active Substance: PROBIOTICS NOS
  5. FISH OIL [Concomitant]
     Active Substance: FISH OIL
  6. ROSUVASTATIN CALCIUM [Concomitant]
     Active Substance: ROSUVASTATIN CALCIUM
  7. INCRUSE ELLIPTA [Concomitant]
     Active Substance: UMECLIDINIUM BROMIDE
  8. ALBUTEROL SULFATE [Concomitant]
     Active Substance: ALBUTEROL SULFATE
  9. PROAIR DIGIHALER [Concomitant]
     Active Substance: ALBUTEROL SULFATE
  10. PANTOPRAZOLE SODIUM [Concomitant]
     Active Substance: PANTOPRAZOLE SODIUM
  11. LOSARTAN POTASSIUM [Concomitant]
     Active Substance: LOSARTAN POTASSIUM
  12. GEMTESA [Concomitant]
     Active Substance: VIBEGRON
  13. ESTRING [Concomitant]
     Active Substance: ESTRADIOL
     Dosage: 7.5 UG, QD
  14. DULOXETINE HYDROCHLORIDE [Concomitant]
     Active Substance: DULOXETINE HYDROCHLORIDE
  15. SYMBICORT [Concomitant]
     Active Substance: BUDESONIDE\FORMOTEROL FUMARATE DIHYDRATE
  16. BENZONATATE [Concomitant]
     Active Substance: BENZONATATE
     Indication: Cough
     Dosage: UNK, PRN
  17. ALPRAZOLAM [Concomitant]
     Active Substance: ALPRAZOLAM
  18. OXYGEN [Concomitant]
     Active Substance: OXYGEN

REACTIONS (6)
  - Abdominal pain upper [Unknown]
  - Nausea [Unknown]
  - Myalgia [Unknown]
  - Injection site pain [Unknown]
  - Arthralgia [Unknown]
  - Accidental exposure to product [Unknown]

NARRATIVE: CASE EVENT DATE: 20221226
